FAERS Safety Report 11767600 (Version 1)
Quarter: 2015Q4

REPORT INFORMATION
  Report Type: Spontaneous
  Country: US (occurrence: None)
  Receive Date: 20151120
  Receipt Date: 20151120
  Transmission Date: 20160304
  Serious: Yes (Life-Threatening)
  Sender: FDA-Public Use
  Company Number: None

PATIENT
  Age: 42 Year
  Sex: Female
  Weight: 79.38 kg

DRUGS (7)
  1. MIRTAZAPINE. [Concomitant]
     Active Substance: MIRTAZAPINE
  2. PANTOPRAZOLE [Concomitant]
     Active Substance: PANTOPRAZOLE SODIUM
  3. OXYCODONE [Concomitant]
     Active Substance: OXYCODONE
  4. TRIAZOLAM. [Suspect]
     Active Substance: TRIAZOLAM
     Indication: DENTAL CARE
  5. TRIAZOLAM. [Suspect]
     Active Substance: TRIAZOLAM
     Indication: TOOTH EXTRACTION
  6. METHADONE [Concomitant]
     Active Substance: METHADONE HYDROCHLORIDE
  7. IBUPROFEN. [Concomitant]
     Active Substance: IBUPROFEN

REACTIONS (2)
  - Loss of consciousness [None]
  - Product label issue [None]

NARRATIVE: CASE EVENT DATE: 20151113
